FAERS Safety Report 6338360-7 (Version None)
Quarter: 2009Q3

REPORT INFORMATION
  Report Type: 
  Country: None (occurrence: None)
  Receive Date: 20090901
  Receipt Date: 20090825
  Transmission Date: 20100115
  Serious: Yes (Other)
  Sender: FDA-Public Use
  Company Number: TPA2009A02450

PATIENT
  Age: 71 Year
  Sex: Female
  Weight: 74.8435 kg

DRUGS (5)
  1. PREVACID [Suspect]
     Indication: GASTROOESOPHAGEAL REFLUX DISEASE
     Dosage: 30 MG, PER ORAL; 15 MG, PER ORAL; 30 MG, QAM, PER ORAL
     Route: 048
  2. CARVEDILOL [Concomitant]
  3. AMITRIPTYLINE HYDROCHLORIDE [Concomitant]
  4. LEVOTHYROXINE SODIUM [Concomitant]
  5. LISINOPRIL [Concomitant]

REACTIONS (5)
  - ANGINA PECTORIS [None]
  - CORONARY ARTERY OCCLUSION [None]
  - CORONARY ARTERY PERFORATION [None]
  - IATROGENIC INJURY [None]
  - OEDEMA PERIPHERAL [None]
